FAERS Safety Report 6347375-4 (Version None)
Quarter: 2009Q3

REPORT INFORMATION
  Report Type: 
  Country: None (occurrence: None)
  Receive Date: 20090910
  Receipt Date: 20090831
  Transmission Date: 20100115
  Serious: Yes (Other)
  Sender: FDA-Public Use
  Company Number: US-JNJFOC-20090504928

PATIENT
  Sex: Female
  Weight: 50.8 kg

DRUGS (2)
  1. REMICADE [Suspect]
     Indication: RHEUMATOID ARTHRITIS
     Dosage: TOTAL: 3 INFUSIONS
     Route: 042
  2. METHOTREXATE [Concomitant]

REACTIONS (3)
  - BASAL CELL CARCINOMA [None]
  - BOWEN'S DISEASE [None]
  - RASH [None]
